FAERS Safety Report 21979511 (Version 1)
Quarter: 2023Q1

REPORT INFORMATION
  Report Type: Spontaneous
  Country: US (occurrence: None)
  Receive Date: 20230209
  Receipt Date: 20230209
  Transmission Date: 20230418
  Serious: Yes (unspecified)
  Sender: FDA-Public Use
  Company Number: None

PATIENT
  Age: 42 Year
  Sex: Female
  Weight: 59.4 kg

DRUGS (2)
  1. GERICARE ARTIFICIAL TEARS LUBRICANT EYE [Suspect]
     Active Substance: GLYCERIN\HYPROMELLOSES\POLYETHYLENE GLYCOL 400
     Indication: Dry eye
     Dates: start: 20221121, end: 20221128
  2. USANA [Concomitant]

REACTIONS (2)
  - Ocular hyperaemia [None]
  - Eye inflammation [None]

NARRATIVE: CASE EVENT DATE: 20221121
